FAERS Safety Report 8188722-0 (Version None)
Quarter: 2012Q1

REPORT INFORMATION
  Report Type: 
  Country: None (occurrence: None)
  Receive Date: 20120306
  Receipt Date: 20120225
  Transmission Date: 20120608
  Serious: Yes (Hospitalization)
  Sender: FDA-Public Use
  Company Number: US-CELGENEUS-163-50794-12022851

PATIENT
  Age: 58 Year
  Sex: Male
  Weight: 116.7 kg

DRUGS (6)
  1. DEXAMETHASONE [Concomitant]
     Route: 065
  2. VIDAZA [Suspect]
     Dosage: 75 MILLIGRAM/SQ. METER
     Route: 058
     Dates: start: 20110616
  3. VORINOSTAT [Suspect]
     Dosage: 300 MILLIGRAM
     Route: 048
     Dates: end: 20110825
  4. VIDAZA [Suspect]
     Dosage: 75 MILLIGRAM/SQ. METER
     Route: 058
     Dates: end: 20110827
  5. VORINOSTAT [Suspect]
     Dosage: 300 MILLIGRAM
     Route: 048
     Dates: start: 20110616
  6. AMLODIPINE BESYLATE [Concomitant]
     Route: 065

REACTIONS (1)
  - SKIN LESION [None]
